FAERS Safety Report 4394458-4 (Version None)
Quarter: 2004Q3

REPORT INFORMATION
  Report Type: 
  Country: None (occurrence: None)
  Receive Date: 20040709
  Receipt Date: 20040709
  Transmission Date: 20050211
  Serious: Yes (Other)
  Sender: FDA-Public Use
  Company Number: None

PATIENT
  Age: 48 Year
  Sex: Female

DRUGS (5)
  1. VANCOMYCIN [Suspect]
     Indication: OSTEOMYELITIS
     Dosage: 1250 MG IV Q24HOURS
     Route: 042
     Dates: start: 20040608, end: 20040703
  2. SODIUM CHLORIDE [Suspect]
  3. CIPRO [Concomitant]
  4. DILAUDID [Concomitant]
  5. SOMA [Concomitant]

REACTIONS (2)
  - HEADACHE [None]
  - RASH [None]
